FAERS Safety Report 10067665 (Version 3)
Quarter: 2014Q4

REPORT INFORMATION
  Report Type: Spontaneous
  Country: US (occurrence: None)
  Receive Date: 20140407
  Receipt Date: 20141113
  Transmission Date: 20150528
  Serious: No
  Sender: FDA-Public Use
  Company Number: 2014-US-003900

PATIENT
  Age: 38 Year
  Sex: Male

DRUGS (4)
  1. XYREM [Suspect]
     Active Substance: SODIUM OXYBATE
     Indication: NARCOLEPSY
     Route: 048
     Dates: start: 201009, end: 2010
  2. ATORVASTATIN CALCIUM. [Concomitant]
     Active Substance: ATORVASTATIN CALCIUM
  3. MELOXICAM. [Concomitant]
     Active Substance: MELOXICAM
  4. NICOTINE. [Concomitant]
     Active Substance: NICOTINE

REACTIONS (1)
  - Malaise [None]
